FAERS Safety Report 6569777-3 (Version None)
Quarter: 2010Q1

REPORT INFORMATION
  Report Type: 
  Country: None (occurrence: None)
  Receive Date: 20100202
  Receipt Date: 20100202
  Transmission Date: 20100710
  Serious: No
  Sender: FDA-Public Use
  Company Number: None

PATIENT
  Sex: Female
  Weight: 95.2554 kg

DRUGS (1)
  1. CUBICIN [Suspect]
     Indication: OSTEOMYELITIS
     Dosage: 800MG Q24 HOURS IV DRIP
     Route: 041
     Dates: start: 20100130, end: 20100201

REACTIONS (2)
  - PRURITUS [None]
  - RASH [None]
